FAERS Safety Report 7529907-3 (Version None)
Quarter: 2011Q2

REPORT INFORMATION
  Report Type: 
  Country: None (occurrence: None)
  Receive Date: 20110531
  Receipt Date: 20110525
  Transmission Date: 20111010
  Serious: Yes (Hospitalization, Other)
  Sender: FDA-Public Use
  Company Number: 2010SP064432

PATIENT
  Age: 34 Year
  Sex: Female
  Weight: 61.2356 kg

DRUGS (1)
  1. NUVARING [Suspect]
     Indication: CONTRACEPTION
     Dates: start: 20081106, end: 20081201

REACTIONS (13)
  - ACNE [None]
  - HUMAN PAPILLOMA VIRUS TEST POSITIVE [None]
  - FALL [None]
  - REFUSAL OF TREATMENT BY PATIENT [None]
  - PULMONARY EMBOLISM [None]
  - BACK PAIN [None]
  - POLYCYSTIC OVARIES [None]
  - PULMONARY HAEMORRHAGE [None]
  - DEEP VEIN THROMBOSIS [None]
  - ANAEMIA [None]
  - HYPERCOAGULATION [None]
  - MUSCLE SPASMS [None]
  - CERVICAL DYSPLASIA [None]
